FAERS Safety Report 5903310-1 (Version None)
Quarter: 2008Q3

REPORT INFORMATION
  Report Type: 
  Country: None (occurrence: None)
  Receive Date: 20080930
  Receipt Date: 20080925
  Transmission Date: 20090109
  Serious: Yes (Hospitalization)
  Sender: FDA-Public Use
  Company Number: B0538714A

PATIENT
  Age: 79 Year
  Sex: Female

DRUGS (1)
  1. AMOXICILLIN [Suspect]
     Route: 048
     Dates: start: 20080102, end: 20080105

REACTIONS (6)
  - PYREXIA [None]
  - RASH [None]
  - RASH GENERALISED [None]
  - RASH MACULAR [None]
  - SKIN LESION [None]
  - TOXIC SKIN ERUPTION [None]
